FAERS Safety Report 25206031 (Version 1)
Quarter: 2025Q2

REPORT INFORMATION
  Report Type: Report from Study
  Country: US (occurrence: US)
  Receive Date: 20250417
  Receipt Date: 20250417
  Transmission Date: 20250716
  Serious: No
  Sender: SUNOVION
  Company Number: US-SUMITOMO PHARMA SWITZERLAND GMBH-2024SPA000293

PATIENT

DRUGS (2)
  1. ORGOVYX [Suspect]
     Active Substance: RELUGOLIX
     Indication: Prostate cancer
     Route: 048
     Dates: start: 20240530, end: 20240530
  2. ORGOVYX [Suspect]
     Active Substance: RELUGOLIX
     Dosage: 120 MG, QD, TAKE 1 TABLET BY MOUTH ONCE DAILY AROUND THE SAME TIME EACH DAY
     Route: 048
     Dates: start: 20240531

REACTIONS (2)
  - Pollakiuria [Unknown]
  - Therapy interrupted [Unknown]
